FAERS Safety Report 24303686 (Version 2)
Quarter: 2025Q1

REPORT INFORMATION
  Report Type: Spontaneous
  Country: BR (occurrence: BR)
  Receive Date: 20240910
  Receipt Date: 20250211
  Transmission Date: 20250408
  Serious: Yes (Other)
  Sender: ALEXION PHARMACEUTICALS
  Company Number: 2024A202911

PATIENT

DRUGS (1)
  1. SYMBICORT [Suspect]
     Active Substance: BUDESONIDE\FORMOTEROL FUMARATE DIHYDRATE
     Dosage: 6/200MCG, 1 INHALATION IN THE MORNING AND 1 BEFORE SLEEPING, BUT SOMETIMES ONLY USE 1 INHALATION PER DAY;TWO TIMES A DAY

REACTIONS (6)
  - Cerebrovascular accident [Unknown]
  - Visual impairment [Unknown]
  - Palpitations [Unknown]
  - Intentional product misuse [Unknown]
  - Device delivery system issue [Unknown]
  - Device malfunction [Unknown]
